FAERS Safety Report 10568419 (Version 1)
Quarter: 2014Q4

REPORT INFORMATION
  Report Type: Spontaneous
  Country: IT (occurrence: IT)
  Receive Date: 20141106
  Receipt Date: 20141106
  Transmission Date: 20150529
  Serious: Yes (Hospitalization)
  Sender: FDA-Public Use
  Company Number: IT-TEVA-519611ISR

PATIENT
  Age: 73 Year
  Sex: Female

DRUGS (4)
  1. MABTHERA [Suspect]
     Active Substance: RITUXIMAB
     Indication: DIFFUSE LARGE B-CELL LYMPHOMA
     Dosage: 487 MILLIGRAM DAILY;
     Route: 042
     Dates: start: 20141014, end: 20141014
  2. DOXORUBICINA TEVA [Suspect]
     Active Substance: DOXORUBICIN
     Indication: DIFFUSE LARGE B-CELL LYMPHOMA
     Dosage: 48 MILLIGRAM DAILY;
     Route: 042
     Dates: start: 20141014, end: 20141014
  3. VINCRISTINA TEVA ITALIA [Suspect]
     Active Substance: VINCRISTINE
     Indication: DIFFUSE LARGE B-CELL LYMPHOMA
     Dosage: 1.4 MILLIGRAM DAILY;
     Route: 042
     Dates: start: 20141014, end: 20141014
  4. ENDOXAN BAXTER [Suspect]
     Active Substance: CYCLOPHOSPHAMIDE
     Indication: DIFFUSE LARGE B-CELL LYMPHOMA
     Dosage: 730 MILLIGRAM DAILY;
     Route: 042
     Dates: start: 20141014, end: 20141014

REACTIONS (2)
  - Febrile neutropenia [Recovering/Resolving]
  - Leukopenia [Recovering/Resolving]

NARRATIVE: CASE EVENT DATE: 20141021
